FAERS Safety Report 5961693-0 (Version None)
Quarter: 2008Q4

REPORT INFORMATION
  Report Type: 
  Country: None (occurrence: None)
  Receive Date: 20081121
  Receipt Date: 20081113
  Transmission Date: 20090506
  Serious: Yes (Hospitalization)
  Sender: FDA-Public Use
  Company Number: US-JNJFOC-20080904065

PATIENT
  Sex: Male
  Weight: 104.33 kg

DRUGS (7)
  1. REMICADE [Suspect]
     Dosage: 2ND DOSE
     Route: 042
  2. REMICADE [Suspect]
     Indication: COLITIS ULCERATIVE
     Route: 042
  3. PREDNISONE TAB [Concomitant]
  4. SINGULAIR [Concomitant]
  5. LIALDA [Concomitant]
  6. ACETAMINOPHEN [Concomitant]
     Indication: PREMEDICATION
  7. ALLEGRA [Concomitant]

REACTIONS (11)
  - BACK PAIN [None]
  - BLOOD PRESSURE INCREASED [None]
  - DYSPNOEA [None]
  - ERYTHEMA [None]
  - FLUSHING [None]
  - HEADACHE [None]
  - INFUSION RELATED REACTION [None]
  - PALPITATIONS [None]
  - PARAESTHESIA [None]
  - TACHYCARDIA [None]
  - URTICARIA [None]
